FAERS Safety Report 14712531 (Version 2)
Quarter: 2018Q3

REPORT INFORMATION
  Report Type: Spontaneous
  Country: DK (occurrence: DK)
  Receive Date: 20180404
  Receipt Date: 20180711
  Transmission Date: 20181010
  Serious: Yes (Other)
  Sender: FDA-Public Use
  Company Number: DK-BRISTOL-MYERS SQUIBB COMPANY-BMS-2018-027828

PATIENT
  Age: 71 Year
  Sex: Female
  Weight: 63 kg

DRUGS (1)
  1. ORENCIA [Suspect]
     Active Substance: ABATACEPT
     Indication: RHEUMATOID ARTHRITIS
     Dosage: 750 MG, 0,2,4,4+, FREQ?4WEEKS
     Route: 042
     Dates: start: 20110308, end: 20141212

REACTIONS (1)
  - Malignant neoplasm of renal pelvis [Not Recovered/Not Resolved]

NARRATIVE: CASE EVENT DATE: 20171111
